FAERS Safety Report 7658983-2 (Version None)
Quarter: 2011Q3

REPORT INFORMATION
  Report Type: 
  Country: None (occurrence: None)
  Receive Date: 20110805
  Receipt Date: 20110722
  Transmission Date: 20111222
  Serious: Yes (Hospitalization, Other)
  Sender: FDA-Public Use
  Company Number: US-ELI_LILLY_AND_COMPANY-US201006006812

PATIENT
  Sex: Female

DRUGS (22)
  1. LOVAZA [Concomitant]
     Dosage: UNK, 2/D
  2. CLARINEX [Concomitant]
     Dosage: 5 MG, DAILY (1/D)
  3. PATANOL [Concomitant]
     Indication: HYPERSENSITIVITY
     Route: 047
  4. FORTEO [Suspect]
     Dosage: 20 UG, DAILY (1/D)
  5. PROVENTIL /00139501/ [Concomitant]
  6. LUTEIN [Concomitant]
     Dosage: 20 MG, DAILY (1/D)
  7. TYLENOL (CAPLET) [Concomitant]
     Indication: ARTHRITIS
     Dosage: UNK, 2/D
  8. FEXOFENADINE [Concomitant]
  9. FORTEO [Suspect]
     Dosage: 20 UG, QD
     Route: 065
  10. SINGULAIR [Concomitant]
     Indication: ASTHMA
     Dosage: 10 MG, DAILY (1/D)
  11. HYDROCHLOROTHIAZIDE [Concomitant]
     Dosage: 25 MG, DAILY (1/D)
  12. FLONASE [Concomitant]
     Dosage: UNK, 2/D
  13. CYCLOBENZAPRINE [Concomitant]
  14. FORTEO [Suspect]
     Indication: OSTEOPOROSIS
     Dosage: 20 UG, DAILY (1/D)
     Dates: start: 20100226, end: 20100614
  15. FORTEO [Suspect]
     Dosage: 20 UG, DAILY (1/D)
     Dates: start: 20100705
  16. MULTI-VITAMIN [Concomitant]
     Dosage: UNK, DAILY (1/D)
  17. MIRALAX [Concomitant]
  18. VOLTAREN                                /SCH/ [Concomitant]
     Indication: ARTHRITIS
     Route: 061
  19. ADVAIR DISKUS 100/50 [Concomitant]
     Dosage: UNK, 2/D
  20. CALCIUM ACETATE [Concomitant]
     Dosage: 1200 MG, 2/D
  21. MACROBID [Concomitant]
  22. PRAVASTATIN [Concomitant]

REACTIONS (2)
  - INJECTION SITE PAIN [None]
  - CARCINOID TUMOUR PULMONARY [None]
